FAERS Safety Report 4653633-1 (Version None)
Quarter: 2005Q2

REPORT INFORMATION
  Report Type: 
  Country: None (occurrence: None)
  Receive Date: 20050404
  Receipt Date: 20041117
  Transmission Date: 20051028
  Serious: No
  Sender: FDA-Public Use
  Company Number: US_0411108597

PATIENT
  Age: 80 Year
  Sex: Female

DRUGS (6)
  1. CYMBALTA [Suspect]
     Indication: ANXIETY
     Dosage: 30 MG/D IN THE MORNING
     Dates: start: 20040901
  2. CYMBALTA [Suspect]
     Indication: DEPRESSION
     Dosage: 30 MG/D IN THE MORNING
     Dates: start: 20040901
  3. DESYREL [Concomitant]
  4. XANAX (ALPRAZOLAM DUM) [Concomitant]
  5. AMBIEN [Concomitant]
  6. ACTONEL [Concomitant]

REACTIONS (2)
  - GLOSSODYNIA [None]
  - TREMOR [None]
